FAERS Safety Report 9822367 (Version 1)
Quarter: 2014Q1

REPORT INFORMATION
  Report Type: Spontaneous
  Country: CH (occurrence: None)
  Receive Date: 20140115
  Receipt Date: 20140115
  Transmission Date: 20141002
  Serious: Yes (Other)
  Sender: FDA-Public Use
  Company Number: 20130759

PATIENT
  Age: 36 Year
  Sex: Female
  Weight: 60 kg

DRUGS (2)
  1. VENOFER (IRON SUCROSE INJECTION-VIFOR) (IRON SUCROSE INJECTION) 20 MG/ML [Suspect]
     Indication: ANAEMIA
     Route: 042
     Dates: start: 20131022, end: 20131022
  2. VENOFER (IRON SUCROSE INJECTION-VIFOR) (IRON SUCROSE INJECTION) 20 MG/ML [Suspect]
     Indication: HAEMOGLOBIN ABNORMAL
     Route: 042
     Dates: start: 20131022, end: 20131022

REACTIONS (5)
  - Nausea [None]
  - Pain in extremity [None]
  - Dyspnoea [None]
  - Headache [None]
  - Haematoma [None]
